FAERS Safety Report 20700497 (Version 1)
Quarter: 2022Q2

REPORT INFORMATION
  Report Type: Spontaneous
  Country: US (occurrence: None)
  Receive Date: 20220411
  Receipt Date: 20220411
  Transmission Date: 20220720
  Serious: Yes (Hospitalization, Disabling)
  Sender: FDA-Public Use
  Company Number: None

PATIENT
  Age: 56 Year
  Sex: Female

DRUGS (12)
  1. INGREZZA [Suspect]
     Active Substance: VALBENAZINE
     Indication: Dyskinesia
     Dosage: FREQUENCY : DAILY;?
     Route: 048
     Dates: start: 20220303, end: 20220322
  2. INGREZZA [Suspect]
     Active Substance: VALBENAZINE
     Indication: Adverse drug reaction
  3. ALBUTEROL SULFATE [Concomitant]
     Active Substance: ALBUTEROL SULFATE
  4. AMLODIPINE [Concomitant]
  5. BUSPIRONE [Concomitant]
     Active Substance: BUSPIRONE HYDROCHLORIDE
  6. DIVALPROEX SODIUM [Concomitant]
     Active Substance: DIVALPROEX SODIUM
  7. LEVOTHYROXINE [Concomitant]
  8. LISINOPRIL [Concomitant]
  9. LITHIUM CARBONATE [Concomitant]
  10. NITROGLYCERIN [Concomitant]
     Active Substance: NITROGLYCERIN
  11. PRAVASTATIN [Concomitant]
     Active Substance: PRAVASTATIN
  12. QUETIAPINE [Concomitant]
     Active Substance: QUETIAPINE

REACTIONS (3)
  - Vertigo [None]
  - Fall [None]
  - Back injury [None]

NARRATIVE: CASE EVENT DATE: 20220323
